FAERS Safety Report 24421582 (Version 1)
Quarter: 2024Q4

REPORT INFORMATION
  Report Type: Spontaneous
  Country: AU (occurrence: AU)
  Receive Date: 20241010
  Receipt Date: 20241010
  Transmission Date: 20250114
  Serious: Yes (Other)
  Sender: OCTAPHARMA
  Company Number: AU-OCTA-GAM29524

PATIENT
  Sex: Male

DRUGS (1)
  1. OCTAGAM IMMUNE GLOBULIN (HUMAN) [Suspect]
     Active Substance: HUMAN IMMUNOGLOBULIN G
     Indication: Encephalitis autoimmune
     Route: 042

REACTIONS (1)
  - Hepatitis B core antibody positive [Unknown]

NARRATIVE: CASE EVENT DATE: 20240918
